FAERS Safety Report 4476529-7 (Version None)
Quarter: 2004Q4

REPORT INFORMATION
  Report Type: 
  Country: None (occurrence: None)
  Receive Date: 20041013
  Receipt Date: 20040928
  Transmission Date: 20050328
  Serious: Yes (Death, Hospitalization)
  Sender: FDA-Public Use
  Company Number: US_0402100475

PATIENT
  Age: 47 Year
  Sex: Female
  Weight: 118 kg

DRUGS (40)
  1. GEMCITABINE HYDROCHLORIDE-IV (GEMCITABINE) [Suspect]
     Indication: BREAST CANCER
     Dosage: 1000 M G/M2 OTHER
     Dates: start: 20040119
  2. DOCETAXEL [Suspect]
     Indication: BREAST CANCER
     Dosage: 75 MG/M2/OTHER
     Dates: start: 20040119
  3. NEUPOGEN [Concomitant]
  4. REGLAN [Concomitant]
  5. TYLENOL [Concomitant]
  6. SENOKOT [Concomitant]
  7. NICOTINE [Concomitant]
  8. DEMEROL [Concomitant]
  9. ALUMINUM HYDROXIDE AND MAGNESIUM TRISILICATE [Concomitant]
  10. CARAFATE [Concomitant]
  11. XYLOCAINE [Concomitant]
  12. AMBIEN [Concomitant]
  13. ARIMIDEX [Concomitant]
  14. MORPHINE SULFATE [Concomitant]
  15. DOXYCYCLINE [Concomitant]
  16. PHENERGAN [Concomitant]
  17. COMPAZINE (PROCHLORPERAZINE EDISLYATE) [Concomitant]
  18. ZOFRAN [Concomitant]
  19. TAMOXIFEN [Concomitant]
  20. VALIUM [Concomitant]
  21. PERCOCET [Concomitant]
  22. MEGACE [Concomitant]
  23. PROTONIX [Concomitant]
  24. IBUPROFEN [Concomitant]
  25. NEURONTIN [Concomitant]
  26. PRILOSEC [Concomitant]
  27. MS CONTIN [Concomitant]
  28. SPIRONOLACTONE [Concomitant]
  29. VIOXX [Concomitant]
  30. PAXIL [Concomitant]
  31. LEVOXYL [Concomitant]
  32. LASIX [Concomitant]
  33. HYDROCORTISONE [Concomitant]
  34. WARFARIN SODIUM [Concomitant]
  35. ATIVAN [Concomitant]
  36. KEFLEX [Concomitant]
  37. LEVAQUIN [Concomitant]
  38. ELAVIL [Concomitant]
  39. DECADRON [Concomitant]
  40. ZOMETA [Concomitant]

REACTIONS (20)
  - ACUTE RESPIRATORY DISTRESS SYNDROME [None]
  - AGE INDETERMINATE MYOCARDIAL INFARCTION [None]
  - ARRHYTHMIA [None]
  - ATRIAL FIBRILLATION [None]
  - BACK PAIN [None]
  - BLOOD PRESSURE SYSTOLIC DECREASED [None]
  - BLOOD SODIUM DECREASED [None]
  - BUNDLE BRANCH BLOCK RIGHT [None]
  - CARDIAC DISORDER [None]
  - CARDIOPULMONARY FAILURE [None]
  - CATHETER SEPSIS [None]
  - DEPRESSED LEVEL OF CONSCIOUSNESS [None]
  - NAUSEA [None]
  - NEUTROPENIC SEPSIS [None]
  - PLATELET COUNT DECREASED [None]
  - PNEUMONIA [None]
  - RENAL FAILURE ACUTE [None]
  - RESPIRATORY FAILURE [None]
  - STAPHYLOCOCCAL INFECTION [None]
  - WHITE BLOOD CELL COUNT DECREASED [None]
